FAERS Safety Report 4882507-6 (Version None)
Quarter: 2006Q1

REPORT INFORMATION
  Report Type: 
  Country: None (occurrence: None)
  Receive Date: 20060113
  Receipt Date: 20060104
  Transmission Date: 20060701
  Serious: Yes (Other)
  Sender: FDA-Public Use
  Company Number: 2006002407

PATIENT
  Age: 75 Year
  Sex: Male
  Weight: 79.3795 kg

DRUGS (2)
  1. LIPITOR [Suspect]
     Indication: BLOOD TRIGLYCERIDES
     Dosage: 10 MG (10 MG, 1 IN 1 D), ORAL
     Route: 048
  2. HYTRIN [Concomitant]

REACTIONS (3)
  - BACK PAIN [None]
  - COMPRESSION FRACTURE [None]
  - MYALGIA [None]
